FAERS Safety Report 5945730-5 (Version None)
Quarter: 2008Q4

REPORT INFORMATION
  Report Type: 
  Country: None (occurrence: None)
  Receive Date: 20081105
  Receipt Date: 20081021
  Transmission Date: 20090506
  Serious: Yes (Hospitalization)
  Sender: FDA-Public Use
  Company Number: 2008AL011333

PATIENT
  Age: 62 Year
  Sex: Female

DRUGS (4)
  1. SERTRALINE HYDROCHLORIDE [Suspect]
     Indication: MAJOR DEPRESSION
     Dosage: 100 MG
  2. PAROXETINE HCL [Concomitant]
  3. MILNACIPRAN [Concomitant]
  4. AMOXAPINE [Concomitant]

REACTIONS (11)
  - AUTONOMIC NERVOUS SYSTEM IMBALANCE [None]
  - CEREBRAL INFARCTION [None]
  - DIARRHOEA [None]
  - DRUG INEFFECTIVE [None]
  - HYPERHIDROSIS [None]
  - HYPERREFLEXIA [None]
  - HYPERTENSION [None]
  - MUSCLE RIGIDITY [None]
  - MYDRIASIS [None]
  - SEROTONIN SYNDROME [None]
  - TACHYCARDIA [None]
